FAERS Safety Report 8913992 (Version 11)
Quarter: 2013Q4

REPORT INFORMATION
  Report Type: Report from Study
  Country: JP (occurrence: JP)
  Receive Date: 20121116
  Receipt Date: 20131113
  Transmission Date: 20140711
  Serious: Yes (Death, Life-Threatening, Hospitalization, Other)
  Sender: FDA-Public Use
  Company Number: JP-VERTEX PHARMACEUTICAL INC.-2012-024700

PATIENT
  Age: 65 Year
  Sex: Female

DRUGS (7)
  1. VX-950 (TELAPREVIR) [Suspect]
     Indication: CHRONIC HEPATITIS C
     Dosage: 1500 MG, QD
     Route: 048
     Dates: start: 20120809, end: 20121101
  2. RIBAVIRIN [Suspect]
     Indication: CHRONIC HEPATITIS C
     Dosage: 400 MG, QD
     Route: 048
     Dates: start: 20120809, end: 20121101
  3. PEGINTRON [Suspect]
     Indication: CHRONIC HEPATITIS C
     Dosage: 80 ?G, QW
     Route: 058
     Dates: start: 20120809, end: 20121026
  4. URSO [Concomitant]
     Dosage: 600 MG, QD
     Route: 048
     Dates: end: 20121101
  5. NORVASC [Concomitant]
     Dosage: 5 MG, QD
     Route: 048
     Dates: end: 20121101
  6. TANATRIL [Concomitant]
     Dosage: 5 MG, QD
     Route: 048
     Dates: end: 20121101
  7. PROMAC [Concomitant]
     Dosage: 150 MG, QD
     Route: 048
     Dates: end: 20121101

REACTIONS (10)
  - Sepsis [Fatal]
  - Acute respiratory distress syndrome [Unknown]
  - Renal disorder [Unknown]
  - Adrenal insufficiency [Unknown]
  - Liver disorder [Unknown]
  - Disseminated intravascular coagulation [Unknown]
  - Pyelonephritis [Unknown]
  - Erythema [Recovered/Resolved]
  - Hyperuricaemia [Not Recovered/Not Resolved]
  - Hyperuricaemia [Not Recovered/Not Resolved]
